FAERS Safety Report 18999601 (Version 1)
Quarter: 2021Q1

REPORT INFORMATION
  Report Type: Spontaneous
  Country: GB (occurrence: GB)
  Receive Date: 20210312
  Receipt Date: 20210312
  Transmission Date: 20210420
  Serious: Yes (Other)
  Sender: FDA-Public Use
  Company Number: GB-AUROBINDO-AUR-APL-2021-010173

PATIENT
  Age: 54 Year
  Sex: Female
  Weight: 99.8 kg

DRUGS (16)
  1. CERNEVIT [Concomitant]
     Active Substance: VITAMINS
     Indication: PARENTERAL NUTRITION
     Dosage: UNK
     Route: 065
     Dates: start: 20210220
  2. THIAMINE. [Concomitant]
     Active Substance: THIAMINE
     Indication: REFEEDING SYNDROME
     Dosage: UNK
     Route: 065
     Dates: start: 20210223
  3. AMOXICILLIN. [Concomitant]
     Active Substance: AMOXICILLIN
     Indication: ABDOMINAL SEPSIS
     Dosage: UNK
     Route: 065
     Dates: start: 20210219
  4. METRONIDAZOLE. [Concomitant]
     Active Substance: METRONIDAZOLE
     Indication: ABDOMINAL SEPSIS
     Dosage: UNK
     Route: 065
     Dates: start: 20210219
  5. PARACETAMOL [Concomitant]
     Active Substance: ACETAMINOPHEN
     Indication: ANALGESIC THERAPY
     Dosage: UNK
     Route: 065
     Dates: start: 20210219
  6. PIPERACILLIN AND TAZOBACTAM [Concomitant]
     Active Substance: PIPERACILLIN SODIUM\TAZOBACTAM SODIUM
     Indication: ABDOMINAL SEPSIS
     Dosage: UNK
     Route: 065
     Dates: start: 20210221
  7. MELATONIN [Concomitant]
     Active Substance: MELATONIN
     Indication: INSOMNIA
     Dosage: UNK
     Route: 065
     Dates: start: 20210224
  8. METOCLOPRAMIDE. [Concomitant]
     Active Substance: METOCLOPRAMIDE
     Indication: PRODUCT USED FOR UNKNOWN INDICATION
     Dosage: UNK
     Route: 065
     Dates: start: 20210224
  9. MEROPENEM INJECTION [Suspect]
     Active Substance: MEROPENEM
     Indication: ABDOMINAL SEPSIS
     Dosage: 4 GRAM, ONCE A DAY, CONTINUOUS INTRAVENOUS INFUSION ON CRITICAL CARE
     Route: 042
     Dates: start: 20210223, end: 20210226
  10. AMIODARONE HYDROCHLORIDE. [Concomitant]
     Active Substance: AMIODARONE HYDROCHLORIDE
     Indication: SUPRAVENTRICULAR TACHYCARDIA
     Dosage: UNK
     Route: 065
     Dates: start: 20210221
  11. GENTAMICIN. [Concomitant]
     Active Substance: GENTAMICIN
     Indication: ABDOMINAL SEPSIS
     Dosage: UNK
     Route: 065
     Dates: start: 20210219
  12. PABRINEX [Concomitant]
     Active Substance: ASCORBIC ACID\VITAMIN B COMPLEX
     Indication: REFEEDING SYNDROME
     Dosage: UNK
     Route: 065
     Dates: start: 20210219
  13. ADDITRACE [Concomitant]
     Active Substance: MINERALS
     Indication: PARENTERAL NUTRITION
     Dosage: UNK
     Route: 065
     Dates: start: 20210220
  14. HYDROCORTISONE SODIUM SUCCINATE [Concomitant]
     Active Substance: HYDROCORTISONE SODIUM SUCCINATE
     Indication: BLOOD PRESSURE DECREASED
     Dosage: UNK
     Route: 065
     Dates: start: 20210219
  15. ENOXAPARIN SODIUM. [Concomitant]
     Active Substance: ENOXAPARIN SODIUM
     Indication: THROMBOSIS PROPHYLAXIS
     Dosage: UNK
     Route: 065
     Dates: start: 20210219
  16. OMEPRAZOLE SODIUM [Concomitant]
     Active Substance: OMEPRAZOLE SODIUM
     Indication: PRODUCT USED FOR UNKNOWN INDICATION
     Dosage: UNK
     Route: 065
     Dates: start: 20210219

REACTIONS (2)
  - Rash erythematous [Not Recovered/Not Resolved]
  - Blister [Unknown]

NARRATIVE: CASE EVENT DATE: 20210226
